FAERS Safety Report 22172317 (Version 1)
Quarter: 2023Q2

REPORT INFORMATION
  Report Type: Spontaneous
  Country: JP (occurrence: JP)
  Receive Date: 20230404
  Receipt Date: 20230404
  Transmission Date: 20230722
  Serious: Yes (Other)
  Sender: FDA-Public Use
  Company Number: JP-PFIZER INC-202300139849

PATIENT

DRUGS (1)
  1. IBRANCE [Suspect]
     Active Substance: PALBOCICLIB
     Dosage: UNK
     Route: 048

REACTIONS (4)
  - Renal impairment [Unknown]
  - Weight increased [Unknown]
  - Dyspnoea exertional [Unknown]
  - Hypertension [Unknown]
